FAERS Safety Report 18114109 (Version 3)
Quarter: 2020Q4

REPORT INFORMATION
  Report Type: Spontaneous
  Country: US (occurrence: US)
  Receive Date: 20200805
  Receipt Date: 20201112
  Transmission Date: 20210113
  Serious: Yes (Hospitalization, Other)
  Sender: FDA-Public Use
  Company Number: US-SHIRE-US202024953

PATIENT

DRUGS (12)
  1. GATTEX [Suspect]
     Active Substance: TEDUGLUTIDE\WATER
     Indication: MALABSORPTION
     Dosage: 2.705 MILLIGRAM, 1X/DAY:QD
     Route: 058
     Dates: start: 201706, end: 201910
  2. GATTEX [Suspect]
     Active Substance: TEDUGLUTIDE\WATER
     Indication: PARENTERAL NUTRITION
  3. GATTEX [Suspect]
     Active Substance: TEDUGLUTIDE\WATER
     Indication: SHORT-BOWEL SYNDROME
     Dosage: 0.3005 UNIT UNKNOWN, 1X/DAY:QD
     Route: 058
     Dates: start: 20170628
  4. GATTEX [Suspect]
     Active Substance: TEDUGLUTIDE\WATER
     Indication: SHORT-BOWEL SYNDROME
     Dosage: 0.3005 UNIT UNKNOWN, 1X/DAY:QD
     Route: 058
     Dates: start: 20170628
  5. GATTEX [Suspect]
     Active Substance: TEDUGLUTIDE\WATER
     Indication: MALABSORPTION
     Dosage: 2.705 MILLIGRAM, 1X/DAY:QD
     Route: 058
     Dates: start: 201706, end: 201910
  6. GATTEX [Suspect]
     Active Substance: TEDUGLUTIDE\WATER
     Indication: MALABSORPTION
     Dosage: 2.705 MILLIGRAM, 1X/DAY:QD
     Route: 058
     Dates: start: 201706, end: 201910
  7. GATTEX [Suspect]
     Active Substance: TEDUGLUTIDE\WATER
     Indication: PARENTERAL NUTRITION
  8. GATTEX [Suspect]
     Active Substance: TEDUGLUTIDE\WATER
     Indication: SHORT-BOWEL SYNDROME
     Dosage: 0.3005 UNIT UNKNOWN, 1X/DAY:QD
     Route: 058
     Dates: start: 20170628
  9. GATTEX [Suspect]
     Active Substance: TEDUGLUTIDE\WATER
     Indication: PARENTERAL NUTRITION
  10. GATTEX [Suspect]
     Active Substance: TEDUGLUTIDE\WATER
     Indication: MALABSORPTION
     Dosage: 2.705 MILLIGRAM, 1X/DAY:QD
     Route: 058
     Dates: start: 201706, end: 201910
  11. GATTEX [Suspect]
     Active Substance: TEDUGLUTIDE\WATER
     Indication: PARENTERAL NUTRITION
  12. GATTEX [Suspect]
     Active Substance: TEDUGLUTIDE\WATER
     Indication: SHORT-BOWEL SYNDROME
     Dosage: 0.3005 UNIT UNKNOWN, 1X/DAY:QD
     Route: 058
     Dates: start: 20170628

REACTIONS (3)
  - COVID-19 [Recovered/Resolved]
  - Syringe issue [Unknown]
  - Diarrhoea [Unknown]

NARRATIVE: CASE EVENT DATE: 20200726
